FAERS Safety Report 9185610 (Version 1)
Quarter: 2013Q1

REPORT INFORMATION
  Report Type: Spontaneous
  Country: BR (occurrence: None)
  Receive Date: 20130321
  Receipt Date: 20130321
  Transmission Date: 20140127
  Serious: Yes (Other)
  Sender: FDA-Public Use
  Company Number: DSJ-2013-05205

PATIENT
  Age: 8 Decade
  Sex: Male
  Weight: 80 kg

DRUGS (2)
  1. BENICAR [Suspect]
     Indication: HYPERTENSION
     Route: 048
     Dates: start: 2010, end: 2011
  2. FINASTERIDE [Concomitant]

REACTIONS (3)
  - Cataract [None]
  - Blood pressure increased [None]
  - Drug administration error [None]
